FAERS Safety Report 26210418 (Version 1)
Quarter: 2025Q4

REPORT INFORMATION
  Report Type: Spontaneous
  Country: CN (occurrence: CN)
  Receive Date: 20251229
  Receipt Date: 20251229
  Transmission Date: 20260118
  Serious: Yes (Hospitalization, Other)
  Sender: AZURITY PHARMACEUTICALS
  Company Number: CN-AZURITY PHARMACEUTICALS, INC.-AZR202512-003992

PATIENT
  Age: 50 Year
  Sex: Male
  Weight: 81.9 kg

DRUGS (2)
  1. AZILSARTAN KAMEDOXOMIL [Suspect]
     Active Substance: AZILSARTAN KAMEDOXOMIL
     Indication: Hypertension
     Dosage: 80 MG, QD (ONCE A DAY)
     Route: 048
     Dates: start: 20251104, end: 20251111
  2. AZILSARTAN KAMEDOXOMIL [Suspect]
     Active Substance: AZILSARTAN KAMEDOXOMIL
     Dosage: 80 MG, QD (ONCE A DAY)
     Route: 048
     Dates: start: 20251104, end: 20251111

REACTIONS (3)
  - Renal failure [Recovering/Resolving]
  - Blood creatinine increased [Recovering/Resolving]
  - Glomerular filtration rate decreased [Recovering/Resolving]

NARRATIVE: CASE EVENT DATE: 20251110
